FAERS Safety Report 23751937 (Version 1)
Quarter: 2024Q2

REPORT INFORMATION
  Report Type: Spontaneous
  Country: DE (occurrence: DE)
  Receive Date: 20240417
  Receipt Date: 20240417
  Transmission Date: 20240716
  Serious: Yes (Other)
  Sender: FDA-Public Use
  Company Number: DE-TEVA-VS-3183250

PATIENT
  Sex: Male

DRUGS (2)
  1. CLONIDINE [Suspect]
     Active Substance: CLONIDINE
     Indication: Blood pressure increased
     Route: 065
  2. CLONIDINE [Suspect]
     Active Substance: CLONIDINE
     Indication: Blood pressure increased
     Dosage: 75?G TABLETS (ORALLY) AND TAKING THE REMAINING RETARD TABLETS FOR THE EVENING/NIGHT
     Route: 048
     Dates: start: 202401

REACTIONS (7)
  - Neoplasm malignant [Unknown]
  - Palpitations [Unknown]
  - Nervousness [Unknown]
  - Blood pressure fluctuation [Unknown]
  - Headache [Unknown]
  - Product availability issue [Unknown]
  - Intentional product misuse [Unknown]
